FAERS Safety Report 8166225-7 (Version None)
Quarter: 2012Q1

REPORT INFORMATION
  Report Type: 
  Country: None (occurrence: None)
  Receive Date: 20120227
  Receipt Date: 20110620
  Transmission Date: 20120608
  Serious: No
  Sender: FDA-Public Use
  Company Number: US-MYLANLABS-2011S1009940

PATIENT
  Age: 21 Year
  Sex: Female

DRUGS (4)
  1. YAZ /06358701/ [Concomitant]
  2. AMNESTEEM [Suspect]
     Route: 048
     Dates: end: 20110401
  3. AMNESTEEM [Suspect]
     Indication: ACNE
     Route: 048
     Dates: start: 20101101
  4. CLARAVIS [Suspect]
     Indication: ACNE

REACTIONS (1)
  - ARTHRALGIA [None]
